FAERS Safety Report 11927191 (Version 1)
Quarter: 2016Q1

REPORT INFORMATION
  Report Type: Spontaneous
  Country: JP (occurrence: JP)
  Receive Date: 20160119
  Receipt Date: 20160119
  Transmission Date: 20160526
  Serious: Yes (Hospitalization, Other)
  Sender: FDA-Public Use
  Company Number: JP-PFIZER INC-2015358629

PATIENT
  Age: 75 Year
  Sex: Male
  Weight: 65.5 kg

DRUGS (4)
  1. HERBESSER [Suspect]
     Active Substance: DILTIAZEM HYDROCHLORIDE
  2. SUTENT [Suspect]
     Active Substance: SUNITINIB MALATE
     Dosage: 37.5 MG, ONCE DAILY, CYCLIC (2-WEEK ADMINISTRATION AND ONE-WEEK INTERRUPTION)
     Route: 048
     Dates: start: 20150201, end: 20150928
  3. SUTENT [Suspect]
     Active Substance: SUNITINIB MALATE
     Indication: METASTATIC RENAL CELL CARCINOMA
     Dosage: 50 MG, 1X/DAY
     Route: 048
     Dates: start: 20101015, end: 20110520
  4. SUTENT [Suspect]
     Active Substance: SUNITINIB MALATE
     Dosage: 37.5 MG, ONCE DAILY, CYCLIC (2-WEEK ADMINISTRATION AND ONE-WEEK INTERRUPTION)
     Route: 048
     Dates: start: 20110603, end: 20141022

REACTIONS (3)
  - Atrial fibrillation [Unknown]
  - Oedema [Recovering/Resolving]
  - Cardiac failure congestive [Recovering/Resolving]

NARRATIVE: CASE EVENT DATE: 201509
